FAERS Safety Report 8211329-3 (Version None)
Quarter: 2012Q1

REPORT INFORMATION
  Report Type: 
  Country: None (occurrence: None)
  Receive Date: 20120315
  Receipt Date: 20120315
  Transmission Date: 20120608
  Serious: Yes (Hospitalization)
  Sender: FDA-Public Use
  Company Number: None

PATIENT
  Age: 36 Year
  Sex: Male
  Weight: 77.564 kg

DRUGS (2)
  1. AMOXICILLIN CLAVULONATE POTASSIUM [Concomitant]
  2. AMOXICILLIN AND CLAVULANATE POTASSIUM [Suspect]
     Indication: SINUSITIS
     Dosage: 1 PILL
     Route: 048
     Dates: start: 20120221, end: 20120222

REACTIONS (1)
  - DELIRIUM [None]
